FAERS Safety Report 7757089-1 (Version None)
Quarter: 2011Q3

REPORT INFORMATION
  Report Type: 
  Country: None (occurrence: None)
  Receive Date: 20110916
  Receipt Date: 20110912
  Transmission Date: 20111222
  Serious: Yes (Hospitalization, Other)
  Sender: FDA-Public Use
  Company Number: FR-BRISTOL-MYERS SQUIBB COMPANY-15924889

PATIENT
  Age: 56 Year
  Sex: Female
  Weight: 75 kg

DRUGS (7)
  1. VALSARTAN [Concomitant]
     Indication: HYPERTENSION
     Route: 048
  2. LASIX [Concomitant]
     Route: 048
  3. OXAZEPAM [Concomitant]
     Indication: ANXIETY
     Route: 048
  4. LANTUS [Concomitant]
     Dosage: 1DF=48MICRO UI
     Route: 058
  5. GLUCOVANCE [Concomitant]
     Indication: DIABETES MELLITUS
     Route: 048
  6. ABILIFY [Suspect]
     Indication: BIPOLAR DISORDER
     Dosage: 1DF=15-30MG
     Route: 048
     Dates: start: 20100101
  7. XALATAN [Concomitant]
     Indication: GLAUCOMA

REACTIONS (5)
  - COTARD'S SYNDROME [None]
  - WAXY FLEXIBILITY [None]
  - CATATONIA [None]
  - DELUSION [None]
  - MAJOR DEPRESSION [None]
